FAERS Safety Report 4730075-1 (Version None)
Quarter: 2005Q3

REPORT INFORMATION
  Report Type: 
  Country: None (occurrence: None)
  Receive Date: 20050728
  Receipt Date: 20050712
  Transmission Date: 20060218
  Serious: Yes (Death, Hospitalization)
  Sender: FDA-Public Use
  Company Number: S05-FRA-02533-01

PATIENT
  Age: 95 Year
  Sex: Female

DRUGS (3)
  1. SEROPLEX (ESCITALOPRAM) [Suspect]
     Indication: MAJOR DEPRESSION
     Dosage: 5 MG QD PO
     Route: 048
     Dates: end: 20050701
  2. LEVOTHYROXINE SODIUM [Suspect]
  3. FLECAINIDE ACETATE [Suspect]

REACTIONS (5)
  - ARRHYTHMIA [None]
  - CONFUSIONAL STATE [None]
  - GASTROINTESTINAL HAEMORRHAGE [None]
  - HYPOKALAEMIA [None]
  - INTERNATIONAL NORMALISED RATIO INCREASED [None]
